FAERS Safety Report 11635672 (Version 1)
Quarter: 2015Q4

REPORT INFORMATION
  Report Type: Spontaneous
  Country: US (occurrence: US)
  Receive Date: 20151016
  Receipt Date: 20151016
  Transmission Date: 20160304
  Serious: No
  Sender: FDA-Public Use
  Company Number: US-PFIZER INC-2015341715

PATIENT
  Age: 60 Year
  Sex: Male
  Weight: 150 kg

DRUGS (1)
  1. GABAPENTIN. [Suspect]
     Active Substance: GABAPENTIN
     Dosage: UNK
     Dates: start: 201510

REACTIONS (4)
  - Burning sensation [Unknown]
  - Drug ineffective [Unknown]
  - Pain in extremity [Unknown]
  - Pain [Unknown]
